FAERS Safety Report 7400981-8 (Version None)
Quarter: 2011Q2

REPORT INFORMATION
  Report Type: 
  Country: None (occurrence: None)
  Receive Date: 20110407
  Receipt Date: 20110325
  Transmission Date: 20111010
  Serious: Yes (Other)
  Sender: FDA-Public Use
  Company Number: PHHY2011US26044

PATIENT
  Sex: Female
  Weight: 49 kg

DRUGS (1)
  1. EXJADE [Suspect]
     Indication: NEOPLASM
     Dosage: 1500 MG, UNK
     Route: 048
     Dates: start: 20100622

REACTIONS (1)
  - LEUKAEMIA [None]
